FAERS Safety Report 5698531-X (Version None)
Quarter: 2008Q2

REPORT INFORMATION
  Report Type: 
  Country: None (occurrence: None)
  Receive Date: 20080408
  Receipt Date: 20080401
  Transmission Date: 20081010
  Serious: Yes (Hospitalization)
  Sender: FDA-Public Use
  Company Number: US-GILEAD-2008-0015938

PATIENT
  Sex: Female

DRUGS (2)
  1. LETAIRIS [Suspect]
     Indication: PULMONARY HYPERTENSION
     Route: 048
     Dates: start: 20050601
  2. BLINDED TREPROSTINIL [Concomitant]
     Indication: PULMONARY HYPERTENSION
     Route: 048
     Dates: start: 20080117, end: 20080208

REACTIONS (1)
  - PULMONARY HYPERTENSION [None]
